FAERS Safety Report 11411910 (Version 2)
Quarter: 2015Q3

REPORT INFORMATION
  Report Type: Spontaneous
  Country: IT (occurrence: IT)
  Receive Date: 20150824
  Receipt Date: 20150908
  Transmission Date: 20151125
  Serious: Yes (Other)
  Sender: FDA-Public Use
  Company Number: IT-SA-2015SA119036

PATIENT
  Age: 78 Year
  Sex: Male

DRUGS (4)
  1. ATORVASTATIN [Concomitant]
     Active Substance: ATORVASTATIN
  2. ENALAPRIL [Concomitant]
     Active Substance: ENALAPRIL
  3. ISOSORBIDE. [Concomitant]
     Active Substance: ISOSORBIDE
  4. CLOPIDOGREL BISULFATE. [Suspect]
     Active Substance: CLOPIDOGREL BISULFATE
     Indication: MYOCARDIAL INFARCTION
     Route: 065

REACTIONS (2)
  - Herpes zoster [Recovered/Resolved]
  - Purpura [Recovered/Resolved]
